FAERS Safety Report 7369727-6 (Version None)
Quarter: 2011Q1

REPORT INFORMATION
  Report Type: 
  Country: None (occurrence: None)
  Receive Date: 20110323
  Receipt Date: 20100907
  Transmission Date: 20110831
  Serious: Yes (Hospitalization)
  Sender: FDA-Public Use
  Company Number: US-BAYER-201025677NA

PATIENT
  Sex: Female
  Weight: 110.46 kg

DRUGS (10)
  1. YAZ [Suspect]
     Route: 048
     Dates: start: 20080901, end: 20081215
  2. PROPRANOLOL [Concomitant]
     Indication: MIGRAINE
  3. LORATADINE [Concomitant]
  4. CITALOPRAM [Concomitant]
     Indication: PRODUCT USED FOR UNKNOWN INDICATION
     Dates: start: 20090101
  5. TYLENOL PM [Concomitant]
     Indication: PAIN
  6. INDERAL [Concomitant]
     Indication: MIGRAINE
  7. MOTRIN [Concomitant]
     Indication: HEADACHE
  8. HORMONES NOS [Concomitant]
     Indication: HORMONE REPLACEMENT THERAPY
  9. DOZOL [DIPHENHYDRAMINE HYDROCHLORIDE,PARACETAMOL] [Concomitant]
  10. ANTIMIGRAINE PREPARATIONS [Concomitant]
     Indication: MIGRAINE

REACTIONS (5)
  - DEEP VEIN THROMBOSIS [None]
  - PULMONARY EMBOLISM [None]
  - PAIN IN EXTREMITY [None]
  - DYSPNOEA [None]
  - TACHYCARDIA [None]
